FAERS Safety Report 13891842 (Version 1)
Quarter: 2017Q3

REPORT INFORMATION
  Report Type: Spontaneous
  Country: GB (occurrence: GB)
  Receive Date: 20170822
  Receipt Date: 20170822
  Transmission Date: 20171127
  Serious: Yes (Other)
  Sender: FDA-Public Use
  Company Number: GB-ACCORD-057364

PATIENT
  Age: 68 Year
  Sex: Female
  Weight: 64 kg

DRUGS (12)
  1. PREDNISOLONE. [Concomitant]
     Active Substance: PREDNISOLONE
     Dates: start: 20170213
  2. ENOXAPARIN [Concomitant]
     Active Substance: ENOXAPARIN
     Dosage: USE AS DIRECTED
     Dates: start: 20170615, end: 20170625
  3. EZETIMIBE. [Concomitant]
     Active Substance: EZETIMIBE
     Dates: start: 20170213
  4. ADCAL [Concomitant]
     Active Substance: CALCIUM CARBONATE
     Dates: start: 20170213
  5. BISOPROLOL [Concomitant]
     Active Substance: BISOPROLOL
     Dates: start: 20170303
  6. VISCOTEARS [Concomitant]
     Active Substance: CARBOMER
     Dosage: AS DIRECTED
     Dates: start: 20170213
  7. MAXIDEX [Concomitant]
     Active Substance: DEXAMETHASONE
     Dosage: OD TO BOTH EYES
     Route: 047
     Dates: start: 20170213
  8. SPIRONOLACTONE. [Suspect]
     Active Substance: SPIRONOLACTONE
     Indication: PRODUCT USED FOR UNKNOWN INDICATION
     Dates: start: 20170601
  9. WARFARIN [Concomitant]
     Active Substance: WARFARIN
     Dosage: AS DIRECTED
     Dates: start: 20170213
  10. MEPTAZINOL/MEPTAZINOL HYDROCHLORIDE [Concomitant]
     Dates: start: 20170213
  11. FUROSEMIDE. [Concomitant]
     Active Substance: FUROSEMIDE
     Dates: start: 20170303
  12. RAMIPRIL. [Concomitant]
     Active Substance: RAMIPRIL
     Dates: start: 20170213

REACTIONS (2)
  - Decreased appetite [Unknown]
  - Dysgeusia [Unknown]

NARRATIVE: CASE EVENT DATE: 20170601
